FAERS Safety Report 5632124-5 (Version None)
Quarter: 2008Q1

REPORT INFORMATION
  Report Type: 
  Country: None (occurrence: None)
  Receive Date: 20080220
  Receipt Date: 20080218
  Transmission Date: 20080703
  Serious: Yes (Hospitalization)
  Sender: FDA-Public Use
  Company Number: AU-MERCK-0802AUS00156

PATIENT
  Age: 81 Year
  Sex: Female
  Weight: 50 kg

DRUGS (4)
  1. FOSAMAX [Suspect]
     Indication: OSTEOPOROSIS
     Route: 048
     Dates: start: 20020101, end: 20071101
  2. DILTIAZEM HYDROCHLORIDE [Concomitant]
     Indication: HYPERTENSION
     Route: 048
     Dates: start: 20000101
  3. SIMVASTATIN [Concomitant]
     Indication: LIPIDS INCREASED
     Route: 065
     Dates: start: 20000101
  4. CALCIUM CARBONATE [Concomitant]
     Route: 048

REACTIONS (2)
  - INTESTINAL ULCER [None]
  - RECTAL HAEMORRHAGE [None]
